APPROVED DRUG PRODUCT: POTASSIUM CHLORIDE
Active Ingredient: POTASSIUM CHLORIDE
Strength: 8MEQ
Dosage Form/Route: TABLET, EXTENDED RELEASE;ORAL
Application: A207528 | Product #001
Applicant: SIGMAPHARM LABORATORIES LLC
Approved: Aug 19, 2016 | RLD: No | RS: No | Type: DISCN